FAERS Safety Report 5603368-3 (Version None)
Quarter: 2008Q1

REPORT INFORMATION
  Report Type: 
  Country: None (occurrence: None)
  Receive Date: 20080122
  Receipt Date: 20080109
  Transmission Date: 20080703
  Serious: Yes (Death)
  Sender: FDA-Public Use
  Company Number: 2008000071

PATIENT
  Age: 83 Year
  Sex: Male

DRUGS (3)
  1. TARCEVA [Suspect]
     Dosage: (QD), ORAL
     Route: 048
     Dates: start: 20070907, end: 20070923
  2. OMEXEL LP [Concomitant]
  3. TEMERIT [Concomitant]

REACTIONS (9)
  - ALANINE AMINOTRANSFERASE INCREASED [None]
  - ANOREXIA [None]
  - ASPARTATE AMINOTRANSFERASE INCREASED [None]
  - BLOOD ALKALINE PHOSPHATASE INCREASED [None]
  - GAMMA-GLUTAMYLTRANSFERASE INCREASED [None]
  - GENERAL PHYSICAL HEALTH DETERIORATION [None]
  - PROTHROMBIN TIME PROLONGED [None]
  - RADIATION MUCOSITIS [None]
  - TRANSAMINASES INCREASED [None]
